FAERS Safety Report 14724096 (Version 2)
Quarter: 2018Q2

REPORT INFORMATION
  Report Type: Report from Study
  Country: US (occurrence: US)
  Receive Date: 20180405
  Receipt Date: 20180406
  Transmission Date: 20180711
  Serious: Yes (Hospitalization)
  Sender: FDA-Public Use
  Company Number: US-ACTELION-A-US2016-140079

PATIENT
  Age: 35 Year
  Sex: Male
  Weight: 82.54 kg

DRUGS (6)
  1. VELETRI [Suspect]
     Active Substance: EPOPROSTENOL
     Indication: PULMONARY HYPERTENSION
     Dosage: 36 NG/KG, PER MIN
     Route: 042
     Dates: start: 20160720
  2. REMODULIN [Concomitant]
     Active Substance: TREPROSTINIL
  3. ADCIRCA [Suspect]
     Active Substance: TADALAFIL
     Indication: PRODUCT USED FOR UNKNOWN INDICATION
     Dosage: 40 MG, QD
     Route: 065
     Dates: start: 2016
  4. LETAIRIS [Suspect]
     Active Substance: AMBRISENTAN
     Indication: PRODUCT USED FOR UNKNOWN INDICATION
     Dosage: 10 MG, QD
     Route: 065
     Dates: start: 2016
  5. VELETRI [Suspect]
     Active Substance: EPOPROSTENOL
     Dosage: 45 NG/KG, PER MIN
     Route: 042
     Dates: start: 20160720
  6. XARELTO [Concomitant]
     Active Substance: RIVAROXABAN

REACTIONS (18)
  - Intestinal resection [Recovered/Resolved]
  - Catheter site pruritus [Unknown]
  - Headache [Unknown]
  - Device dislocation [Unknown]
  - Device related infection [Unknown]
  - Vomiting [Unknown]
  - Nausea [Unknown]
  - Colon cancer [Recovered/Resolved]
  - Pain in extremity [Unknown]
  - Pain in jaw [Unknown]
  - Haematochezia [Recovered/Resolved]
  - Bacterial infection [Unknown]
  - Skin infection [Unknown]
  - Abdominal discomfort [Unknown]
  - Pyrexia [Unknown]
  - Catheter site discharge [Unknown]
  - Diarrhoea [Unknown]
  - Rectal haemorrhage [Recovered/Resolved]

NARRATIVE: CASE EVENT DATE: 20170916
